FAERS Safety Report 4365516-5 (Version None)
Quarter: 2004Q2

REPORT INFORMATION
  Report Type: 
  Country: None (occurrence: None)
  Receive Date: 20040526
  Receipt Date: 20040503
  Transmission Date: 20050107
  Serious: Yes (Death, Hospitalization)
  Sender: FDA-Public Use
  Company Number: DEBAX-S-20040002

PATIENT
  Age: 56 Year
  Sex: Male
  Weight: 59 kg

DRUGS (8)
  1. NAVELBINE [Suspect]
     Indication: NON-SMALL CELL LUNG CANCER
     Dosage: 40MG SEE DOSAGE TEXT
     Route: 042
     Dates: start: 20040402
  2. CISPLATIN [Suspect]
     Indication: ILL-DEFINED DISORDER
     Dosage: 119MG SEE DOSAGE TEXT
     Dates: start: 20040402
  3. RANITIDINE [Concomitant]
     Route: 042
     Dates: start: 20040408, end: 20040408
  4. SINECOD [Concomitant]
     Route: 048
     Dates: start: 20040406, end: 20040408
  5. DIAMICRON [Concomitant]
     Route: 048
  6. AVANDIA [Concomitant]
     Route: 048
  7. IMDUR [Concomitant]
     Dates: start: 20040408
  8. AMLODIPINE [Concomitant]
     Dates: start: 20040408

REACTIONS (12)
  - ACUTE RESPIRATORY FAILURE [None]
  - ATRIAL FIBRILLATION [None]
  - BLOOD PRESSURE DECREASED [None]
  - CARDIO-RESPIRATORY ARREST [None]
  - COUGH [None]
  - DYSPNOEA [None]
  - FEBRILE NEUTROPENIA [None]
  - METABOLIC ACIDOSIS [None]
  - PLEURAL EFFUSION [None]
  - PNEUMONIA [None]
  - RESPIRATORY DISTRESS [None]
  - SEPSIS [None]
